FAERS Safety Report 6309277-9 (Version None)
Quarter: 2009Q3

REPORT INFORMATION
  Report Type: 
  Country: None (occurrence: None)
  Receive Date: 20090814
  Receipt Date: 20090811
  Transmission Date: 20100115
  Serious: Yes (Hospitalization)
  Sender: FDA-Public Use
  Company Number: AU-ASTRAZENECA-2009SE07432

PATIENT
  Age: 24111 Day
  Sex: Male

DRUGS (2)
  1. CRESTOR [Suspect]
     Indication: BLOOD CHOLESTEROL INCREASED
     Route: 048
     Dates: start: 20090802
  2. CRESTOR [Suspect]
     Route: 048
     Dates: start: 20090804, end: 20090804

REACTIONS (2)
  - ACCIDENTAL OVERDOSE [None]
  - MYOCARDIAL INFARCTION [None]
